FAERS Safety Report 10020589 (Version 1)
Quarter: 2014Q1

REPORT INFORMATION
  Report Type: Report from Study
  Country: US (occurrence: US)
  Receive Date: 20140319
  Receipt Date: 20140319
  Transmission Date: 20141002
  Serious: Yes (Other)
  Sender: FDA-Public Use
  Company Number: US-ROCHE-1362790

PATIENT
  Age: 49 Year
  Sex: Female
  Weight: 59.47 kg

DRUGS (20)
  1. ACTEMRA [Suspect]
     Indication: RHEUMATOID ARTHRITIS
     Route: 042
     Dates: start: 201301, end: 201304
  2. ACTEMRA [Suspect]
     Route: 042
     Dates: start: 201306
  3. ACTEMRA [Suspect]
     Route: 042
     Dates: start: 201309
  4. ACTEMRA [Suspect]
     Route: 042
     Dates: start: 201310
  5. ACTEMRA [Suspect]
     Route: 042
     Dates: start: 201311
  6. ACTEMRA [Suspect]
     Route: 042
     Dates: start: 20131203
  7. CYMBALTA [Concomitant]
     Indication: FIBROMYALGIA
     Route: 065
  8. CYMBALTA [Concomitant]
     Indication: DEPRESSION
  9. HYDROXYCHLOROQUINE [Concomitant]
     Indication: RHEUMATOID ARTHRITIS
     Route: 065
  10. FOLIC ACID [Concomitant]
     Indication: FATIGUE
     Route: 065
  11. FOLIC ACID [Concomitant]
     Indication: FIBROMYALGIA
  12. MONTELUKAST [Concomitant]
     Indication: HYPERSENSITIVITY
     Route: 065
  13. AMPHETAMINE SULFATE/DEXTROAMPHETAMINE [Concomitant]
     Indication: ATTENTION DEFICIT/HYPERACTIVITY DISORDER
     Route: 065
  14. OMEPRAZOLE [Concomitant]
     Indication: GASTROOESOPHAGEAL REFLUX DISEASE
     Route: 065
  15. HYOSCYAMINE SULFATE [Concomitant]
     Indication: ABDOMINAL PAIN UPPER
     Route: 065
  16. TRAMADOL HCL [Concomitant]
     Indication: PAIN
     Route: 065
  17. ISOSORBIDE DINITRATE [Concomitant]
     Route: 065
  18. OXYCODONE/ACETAMINOPHEN [Concomitant]
     Dosage: 5/325
     Route: 065
  19. ADVAIR DISKUS [Concomitant]
     Route: 065
  20. PROAIR (UNITED STATES) [Concomitant]
     Route: 065

REACTIONS (12)
  - Gastrointestinal inflammation [Unknown]
  - Vision blurred [Not Recovered/Not Resolved]
  - Visual impairment [Not Recovered/Not Resolved]
  - Fatigue [Unknown]
  - Thrombosis [Unknown]
  - Weight decreased [Unknown]
  - Diarrhoea [Unknown]
  - Pain in extremity [Unknown]
  - Back pain [Unknown]
  - Abdominal discomfort [Unknown]
  - Polyp [Unknown]
  - Joint swelling [Recovered/Resolved]
